FAERS Safety Report 8374745-5 (Version None)
Quarter: 2012Q2

REPORT INFORMATION
  Report Type: 
  Country: None (occurrence: None)
  Receive Date: 20120521
  Receipt Date: 20120511
  Transmission Date: 20120825
  Serious: Yes (Hospitalization)
  Sender: FDA-Public Use
  Company Number: US-ACTELION-A-NJ2012-63422

PATIENT

DRUGS (2)
  1. TRACLEER [Suspect]
     Indication: PULMONARY ARTERIAL HYPERTENSION
     Dosage: UNK
     Route: 048
     Dates: start: 20110715
  2. REVATIO [Concomitant]

REACTIONS (4)
  - RESPIRATORY SYNCYTIAL VIRUS INFECTION [None]
  - RESPIRATORY DISTRESS [None]
  - PNEUMONIA [None]
  - MECHANICAL VENTILATION [None]
